FAERS Safety Report 10642744 (Version 1)
Quarter: 2014Q4

REPORT INFORMATION
  Report Type: Spontaneous
  Country: US (occurrence: US)
  Receive Date: 20141210
  Receipt Date: 20141210
  Transmission Date: 20150529
  Serious: No
  Sender: FDA-Public Use
  Company Number: US-009507513-1411USA010762

PATIENT

DRUGS (1)
  1. SIMVASTATIN. [Suspect]
     Active Substance: SIMVASTATIN
     Indication: BLOOD CHOLESTEROL ABNORMAL
     Dosage: DOSE UNKNOWN, DAILY
     Route: 048

REACTIONS (4)
  - Cataract [Unknown]
  - Pain [Unknown]
  - Musculoskeletal pain [Unknown]
  - Muscle spasms [Unknown]
